FAERS Safety Report 19423470 (Version 2)
Quarter: 2021Q2

REPORT INFORMATION
  Report Type: Spontaneous
  Country: PL (occurrence: PL)
  Receive Date: 20210616
  Receipt Date: 20210622
  Transmission Date: 20210717
  Serious: Yes (Hospitalization, Other)
  Sender: FDA-Public Use
  Company Number: PL-TOPROL-2021000121

PATIENT
  Age: 41 Year
  Sex: Male

DRUGS (16)
  1. CARVEDILOL. [Suspect]
     Active Substance: CARVEDILOL
     Route: 065
  2. TORASEMIDE [Suspect]
     Active Substance: TORSEMIDE
     Route: 048
  3. FUROSEMIDE. [Suspect]
     Active Substance: FUROSEMIDE
     Dosage: 2X1 AMPULE
     Route: 042
  4. METOPROLOL. [Suspect]
     Active Substance: METOPROLOL
     Route: 065
     Dates: start: 20201123
  5. PROPRANOLOL [Suspect]
     Active Substance: PROPRANOLOL HYDROCHLORIDE
     Route: 065
     Dates: start: 20201120
  6. VALSARTAN###SACUBITRIL [Suspect]
     Active Substance: SACUBITRIL\VALSARTAN
     Dosage: 49/51 MG
     Dates: start: 20201125
  7. PERINDOPRIL [Suspect]
     Active Substance: PERINDOPRIL
     Route: 065
  8. AMIODARONE [Suspect]
     Active Substance: AMIODARONE
     Route: 042
     Dates: start: 20201123
  9. VALSARTAN###SACUBITRIL [Suspect]
     Active Substance: SACUBITRIL\VALSARTAN
     Dosage: 24/26 MG
     Dates: start: 20201120
  10. ATORVASTATIN [Suspect]
     Active Substance: ATORVASTATIN
     Route: 065
  11. AMIODARONE [Suspect]
     Active Substance: AMIODARONE
     Route: 042
     Dates: start: 20201121
  12. AMIODARONE [Suspect]
     Active Substance: AMIODARONE
     Route: 042
     Dates: start: 20201117
  13. EPLERENONE. [Suspect]
     Active Substance: EPLERENONE
     Route: 065
  14. LIGNOCAINE [Suspect]
     Active Substance: LIDOCAINE HYDROCHLORIDE
     Dosage: UNK
     Route: 042
     Dates: start: 20201121
  15. ENOXAPARIN [Suspect]
     Active Substance: ENOXAPARIN
     Dosage: AMPOULE
     Route: 058
  16. DIGOXIN. [Suspect]
     Active Substance: DIGOXIN
     Dosage: 1 AMPOULE
     Route: 042

REACTIONS (6)
  - Cardiac arrest [Recovered/Resolved]
  - Electrocardiogram QT prolonged [Unknown]
  - Myocarditis [Unknown]
  - Pyrexia [Unknown]
  - Psychotic disorder [Unknown]
  - Hypotonia [Unknown]

NARRATIVE: CASE EVENT DATE: 20201117
